FAERS Safety Report 9496684 (Version 2)
Quarter: 2013Q4

REPORT INFORMATION
  Report Type: Spontaneous
  Country: GB (occurrence: GB)
  Receive Date: 20130904
  Receipt Date: 20131209
  Transmission Date: 20140711
  Serious: Yes (Other)
  Sender: FDA-Public Use
  Company Number: PHHY2013GB094015

PATIENT
  Age: 64 Year
  Sex: Male
  Weight: 80 kg

DRUGS (5)
  1. AMIODARONE [Suspect]
     Indication: ATRIAL FIBRILLATION
     Dosage: 200 MG, UNK
     Route: 048
     Dates: start: 201303, end: 20130813
  2. LIGNOCAINE [Interacting]
  3. ATORVASTATIN [Concomitant]
  4. OMACOR [Concomitant]
  5. WARFARIN [Concomitant]

REACTIONS (5)
  - Dizziness postural [Recovered/Resolved]
  - Pallor [Recovered/Resolved]
  - Heart rate decreased [Recovered/Resolved]
  - Dizziness [Recovered/Resolved]
  - Drug interaction [Unknown]
